FAERS Safety Report 21302971 (Version 1)
Quarter: 2022Q3

REPORT INFORMATION
  Report Type: Spontaneous
  Country: US (occurrence: None)
  Receive Date: 20220907
  Receipt Date: 20220907
  Transmission Date: 20221027
  Serious: No
  Sender: FDA-Public Use
  Company Number: None

PATIENT
  Age: 51 Year
  Sex: Female

DRUGS (9)
  1. ZARXIO [Suspect]
     Active Substance: FILGRASTIM-SNDZ
     Indication: Rectosigmoid cancer
     Dosage: FREQUENCY : DAILY;?
     Route: 058
  2. DOCUSATE [Concomitant]
  3. GABAPENTIN [Concomitant]
  4. LOPERAMIDE [Concomitant]
  5. METFORMIN [Concomitant]
  6. OXYCODONE [Concomitant]
  7. PANTOPRAZOLE [Concomitant]
  8. PROCHLORPERAZINE [Concomitant]
  9. SENNOSIDES [Concomitant]

REACTIONS (1)
  - Disease progression [None]
